FAERS Safety Report 5390136-3 (Version None)
Quarter: 2007Q3

REPORT INFORMATION
  Report Type: 
  Country: None (occurrence: None)
  Receive Date: 20070716
  Receipt Date: 20070716
  Transmission Date: 20080115
  Serious: Yes (Hospitalization)
  Sender: FDA-Public Use
  Company Number: None

PATIENT
  Age: 81 Year
  Sex: Female
  Weight: 95 kg

DRUGS (2)
  1. CELECOXIB [Suspect]
     Indication: ARTHRITIS
     Dosage: 200MG  PO
     Route: 048
  2. WARFARIN SODIUM [Suspect]
     Indication: DEEP VEIN THROMBOSIS
     Dosage: ?

REACTIONS (1)
  - GASTROINTESTINAL HAEMORRHAGE [None]
